FAERS Safety Report 9756746 (Version 1)
Quarter: 2013Q4

REPORT INFORMATION
  Report Type: Spontaneous
  Country: US (occurrence: US)
  Receive Date: 20131213
  Receipt Date: 20131213
  Transmission Date: 20140711
  Serious: No
  Sender: FDA-Public Use
  Company Number: US-009507513-1312USA004506

PATIENT
  Age: 84 Year
  Sex: Female
  Weight: 61.68 kg

DRUGS (8)
  1. MIRALAX [Suspect]
     Indication: IRRITABLE BOWEL SYNDROME
     Dosage: 17 G, UNK
     Route: 048
     Dates: start: 201201
  2. CHLORDIAZEPOXIDE HYDROCHLORIDE (+) CLIDINIUM BROMIDE [Suspect]
     Indication: IRRITABLE BOWEL SYNDROME
     Dosage: UNK
     Dates: start: 20130823
  3. SYNTHROID [Concomitant]
     Indication: TOXIC NODULAR GOITRE
  4. FIBER (UNSPECIFIED) [Concomitant]
     Indication: IRRITABLE BOWEL SYNDROME
  5. ATENOLOL [Concomitant]
     Indication: HYPERTENSION
  6. HYDROCHLOROTHIAZIDE (+) LOSARTAN POTASSIUM [Concomitant]
     Indication: HYPERTENSION
  7. CLONIDINE [Concomitant]
     Indication: HYPERTENSION
  8. BENEFIBER [Concomitant]
     Indication: CONSTIPATION
     Dosage: UNK
     Route: 048
     Dates: start: 201201

REACTIONS (3)
  - Constipation [Recovered/Resolved]
  - Off label use [Unknown]
  - Incorrect drug administration duration [Unknown]
